FAERS Safety Report 8239162-7 (Version None)
Quarter: 2012Q1

REPORT INFORMATION
  Report Type: 
  Country: None (occurrence: None)
  Receive Date: 20120328
  Receipt Date: 20120321
  Transmission Date: 20120608
  Serious: Yes (Hospitalization)
  Sender: FDA-Public Use
  Company Number: US-BIOGENIDEC-2012BI010470

PATIENT
  Age: 45 Year
  Sex: Female

DRUGS (2)
  1. TYSABRI [Suspect]
     Route: 042
     Dates: start: 20111001
  2. TYSABRI [Suspect]
     Indication: MULTIPLE SCLEROSIS
     Route: 042
     Dates: start: 20050801, end: 20110701

REACTIONS (6)
  - FEELING ABNORMAL [None]
  - DRUG SPECIFIC ANTIBODY PRESENT [None]
  - MUSCULAR WEAKNESS [None]
  - ANGINA PECTORIS [None]
  - COGNITIVE DISORDER [None]
  - HYPERTENSION [None]
